FAERS Safety Report 6684527-8 (Version None)
Quarter: 2010Q2

REPORT INFORMATION
  Report Type: 
  Country: None (occurrence: None)
  Receive Date: 20100416
  Receipt Date: 20100407
  Transmission Date: 20101027
  Serious: Yes (Life-Threatening)
  Sender: FDA-Public Use
  Company Number: JP-ROCHE-694631

PATIENT
  Sex: Male
  Weight: 59 kg

DRUGS (10)
  1. AVASTIN [Suspect]
     Indication: NON-SMALL CELL LUNG CANCER RECURRENT
     Route: 041
     Dates: start: 20100305, end: 20100305
  2. ALIMTA [Suspect]
     Indication: NON-SMALL CELL LUNG CANCER RECURRENT
     Dosage: DRUG REPORTED: ALIMTA (PEMETREXED SODIUM HYDRATE)
     Route: 041
     Dates: start: 20100305, end: 20100305
  3. CARBOPLATIN [Concomitant]
     Route: 041
     Dates: start: 20100305, end: 20100305
  4. LENDORMIN [Concomitant]
     Route: 048
     Dates: start: 20100218
  5. PANVITAN [Concomitant]
     Dosage: DRUG: PANVITAN (RETINOL CALCIFEROL COMBINED DRUG). DOSE FORM: POWDERED MEDICINE
     Route: 048
     Dates: start: 20100225
  6. ZYRTEC [Concomitant]
     Dosage: DRUG: ZYRTEC (CETRIZINE HYDROCHLORIDE)
     Route: 048
     Dates: start: 20100225
  7. GASMOTIN [Concomitant]
     Dosage: DRUG: GASMOTIN (MOSAPRIDE CITRATE)
     Route: 048
     Dates: start: 20100301
  8. GRANISETRON [Concomitant]
     Dosage: DRUG: GRANISETRON (GRANISETRON HYDROCHLORIDE)
     Route: 042
     Dates: start: 20100305, end: 20100305
  9. DECADRON [Concomitant]
     Dosage: DECADRON (DEXAMETHASONE SODIUM PHOSPHATE)
     Route: 042
     Dates: start: 20100305, end: 20100305
  10. LOXONIN [Concomitant]
     Dosage: DOSE ADJUSTED
     Route: 048

REACTIONS (1)
  - PNEUMOTHORAX [None]
